FAERS Safety Report 26155205 (Version 1)
Quarter: 2025Q4

REPORT INFORMATION
  Report Type: Spontaneous
  Country: US (occurrence: US)
  Receive Date: 20251215
  Receipt Date: 20251215
  Transmission Date: 20260117
  Serious: Yes (Disabling, Other)
  Sender: ACCORD
  Company Number: US-Accord-517430

PATIENT
  Age: 52 Year
  Sex: Male

DRUGS (6)
  1. SERTRALINE [Interacting]
     Active Substance: SERTRALINE HYDROCHLORIDE
     Indication: Generalised anxiety disorder
     Dates: start: 202309
  2. BROMFED DM [Interacting]
     Active Substance: BROMPHENIRAMINE MALEATE\DEXTROMETHORPHAN HYDROBROMIDE\PSEUDOEPHEDRINE HYDROCHLORIDE
     Indication: Cough
     Dosage: BROMFED DM SYRUP (BROMPHENIRAMINE 2
  3. METHIMAZOLE [Concomitant]
     Active Substance: METHIMAZOLE
  4. METHYLPREDNISOLONE [Concomitant]
     Active Substance: METHYLPREDNISOLONE
     Dosage: DOSE PACK
  5. HYDROCHLOROTHIAZIDE\OLMESARTAN MEDOXOMIL [Concomitant]
     Active Substance: HYDROCHLOROTHIAZIDE\OLMESARTAN MEDOXOMIL
  6. PROPRANOLOL [Concomitant]
     Active Substance: PROPRANOLOL HYDROCHLORIDE

REACTIONS (3)
  - Serotonin syndrome [Recovering/Resolving]
  - Inhibitory drug interaction [Recovered/Resolved]
  - Loss of personal independence in daily activities [Recovering/Resolving]
